FAERS Safety Report 25816685 (Version 6)
Quarter: 2025Q4

REPORT INFORMATION
  Report Type: Report from Study
  Country: US (occurrence: US)
  Receive Date: 20250918
  Receipt Date: 20251211
  Transmission Date: 20260118
  Serious: No
  Sender: ACADIA PHARMACEUTICALS
  Company Number: US-ACADIA PHARMACEUTICALS INC.-ACA-2025-TRF-010309

PATIENT
  Sex: Female
  Weight: 52.2 kg

DRUGS (4)
  1. DAYBUE [Suspect]
     Active Substance: TROFINETIDE
     Indication: Rett syndrome
     Dosage: 30 MILLILITER, BID
     Route: 048
     Dates: start: 20240321
  2. CLONAZEPAM [Concomitant]
     Active Substance: CLONAZEPAM
     Dosage: 0.6 MILLIGRAM NIGHTLY
  3. CLONIDINE [Concomitant]
     Active Substance: CLONIDINE
     Dosage: 0.2 MILLIGRAM NIGHTLY
  4. VIMPAT [Concomitant]
     Active Substance: LACOSAMIDE
     Dosage: 20 MILLIGRAM, BID

REACTIONS (6)
  - Weight decreased [Not Recovered/Not Resolved]
  - Diarrhoea [Recovered/Resolved]
  - Diarrhoea [Not Recovered/Not Resolved]
  - Sinusitis [Recovered/Resolved]
  - Product dose omission issue [Recovered/Resolved]
  - Underdose [Unknown]
